FAERS Safety Report 7155101-4 (Version None)
Quarter: 2010Q4

REPORT INFORMATION
  Report Type: 
  Country: None (occurrence: None)
  Receive Date: 20101214
  Receipt Date: 20101020
  Transmission Date: 20110411
  Serious: No
  Sender: FDA-Public Use
  Company Number: US-AMGEN-KDL183342

PATIENT

DRUGS (2)
  1. ENBREL [Suspect]
     Indication: ANKYLOSING SPONDYLITIS
     Dosage: 25 MG, 2 TIMES/WK
     Route: 058
     Dates: start: 20051130
  2. ENBREL [Suspect]
     Dates: start: 20071201

REACTIONS (7)
  - ACNE [None]
  - ANKYLOSING SPONDYLITIS [None]
  - BACK PAIN [None]
  - FURUNCLE [None]
  - GENERAL PHYSICAL HEALTH DETERIORATION [None]
  - PAIN [None]
  - THERAPEUTIC RESPONSE DECREASED [None]
